FAERS Safety Report 8964518 (Version 1)
Quarter: 2012Q4

REPORT INFORMATION
  Report Type: 
  Country: US (occurrence: US)
  Receive Date: 20121214
  Receipt Date: 20121214
  Transmission Date: 20130627
  Serious: No
  Sender: FDA-Public Use
  Company Number: US-BAYER-2012-124309

PATIENT
  Age: 54 Year
  Sex: Male
  Weight: 95.24 kg

DRUGS (7)
  1. BETASERON [Suspect]
     Dosage: 0.25 mg, QOD
     Route: 058
  2. CLONAZEPAM [Concomitant]
     Dosage: 0.5 mg, UNK
     Route: 048
  3. PREVACID [Concomitant]
     Dosage: 30 mg, STB
     Route: 048
  4. POTASSIUM [Concomitant]
     Dosage: 75 mg, UNK
     Route: 048
  5. ASPIRIN LOW [Concomitant]
     Dosage: 81 mg, UNK
     Route: 048
  6. MULTIVITAMIN [Concomitant]
     Route: 048
  7. VITAMIN C [Concomitant]
     Dosage: 1000 mg, UNK
     Route: 048

REACTIONS (2)
  - Injection site bruising [Unknown]
  - Injection site pain [Unknown]
